FAERS Safety Report 24389797 (Version 2)
Quarter: 2024Q4

REPORT INFORMATION
  Report Type: Spontaneous
  Country: GB (occurrence: GB)
  Receive Date: 20241003
  Receipt Date: 20241004
  Transmission Date: 20250115
  Serious: Yes (Other)
  Sender: ABBVIE
  Company Number: None

PATIENT
  Age: 62 Year
  Sex: Male
  Weight: 114 kg

DRUGS (1)
  1. ADALIMUMAB [Suspect]
     Active Substance: ADALIMUMAB
     Indication: Ankylosing spondylitis
     Route: 058
     Dates: start: 202403, end: 20240601

REACTIONS (4)
  - Myalgia [Not Recovered/Not Resolved]
  - Pain in extremity [Unknown]
  - Groin pain [Unknown]
  - Medication error [Unknown]

NARRATIVE: CASE EVENT DATE: 20240101
